FAERS Safety Report 24276539 (Version 1)
Quarter: 2024Q3

REPORT INFORMATION
  Report Type: Spontaneous
  Country: BR (occurrence: BR)
  Receive Date: 20240903
  Receipt Date: 20240903
  Transmission Date: 20241016
  Serious: Yes (Other)
  Sender: RANBAXY
  Company Number: BR-SUN PHARMACEUTICAL INDUSTRIES LTD-2024R1-465183

PATIENT
  Age: 18 Year
  Sex: Female

DRUGS (3)
  1. PREDNISONE [Suspect]
     Active Substance: PREDNISONE
     Indication: Pemphigus
     Dosage: 30 MILLIGRAM, QD
     Route: 065
  2. CLOBETASOL PROPIONATE [Concomitant]
     Active Substance: CLOBETASOL PROPIONATE
     Indication: Pemphigus
     Dosage: 0.5 MILLIGRAM PER GRAM, TID
     Route: 061
  3. ACYCLOVIR [Concomitant]
     Active Substance: ACYCLOVIR
     Indication: Pemphigus
     Dosage: 400 MILLIGRAM(FOUR TIMES A DAY)
     Route: 048

REACTIONS (1)
  - Disease recurrence [Unknown]
